FAERS Safety Report 23624699 (Version 10)
Quarter: 2024Q4

REPORT INFORMATION
  Report Type: Report from Study
  Country: CA (occurrence: CA)
  Receive Date: 20240313
  Receipt Date: 20241009
  Transmission Date: 20250115
  Serious: Yes (Other)
  Sender: JOHNSON AND JOHNSON
  Company Number: CA-JNJFOC-20240107315

PATIENT
  Age: 69 Year
  Sex: Female

DRUGS (17)
  1. STELARA [Suspect]
     Active Substance: USTEKINUMAB
     Indication: Colitis ulcerative
     Route: 058
     Dates: start: 20191018
  2. STELARA [Suspect]
     Active Substance: USTEKINUMAB
     Route: 058
     Dates: start: 20191211
  3. STELARA [Suspect]
     Active Substance: USTEKINUMAB
     Route: 058
     Dates: start: 20191211
  4. STELARA [Suspect]
     Active Substance: USTEKINUMAB
     Route: 058
     Dates: start: 20191211
  5. OMEPRAZOLE [Concomitant]
     Active Substance: OMEPRAZOLE
     Dosage: 20MG BID
  6. CLONAZEPAM [Concomitant]
     Active Substance: CLONAZEPAM
     Dosage: 0.5MG TID
  7. TOLTERODINE [Concomitant]
     Active Substance: TOLTERODINE
     Dosage: BID
  8. ZOPICLONE [Concomitant]
     Active Substance: ZOPICLONE
     Dosage: 7.5MG HS
  9. SEROQUEL [Concomitant]
     Active Substance: QUETIAPINE FUMARATE
     Dosage: 25 MG HS
  10. SEROQUEL XR [Concomitant]
     Active Substance: QUETIAPINE FUMARATE
  11. ESCITALOPRAM [Concomitant]
     Active Substance: ESCITALOPRAM OXALATE
  12. INDERAL [Concomitant]
     Active Substance: PROPRANOLOL HYDROCHLORIDE
  13. VITAMIN D3 [Concomitant]
     Active Substance: CHOLECALCIFEROL
     Dosage: 1000IU DAILY
  14. ALENDRONATE [Concomitant]
     Active Substance: ALENDRONATE SODIUM
  15. AMLODIPINE [Concomitant]
     Active Substance: AMLODIPINE BESYLATE
  16. PROPRANOLOL [Concomitant]
     Active Substance: PROPRANOLOL HYDROCHLORIDE
     Dosage: 40MG BID
  17. PREDNISONE [Concomitant]
     Active Substance: PREDNISONE

REACTIONS (17)
  - Blood iron decreased [Not Recovered/Not Resolved]
  - Constipation [Not Recovered/Not Resolved]
  - Diarrhoea [Not Recovered/Not Resolved]
  - Pneumonia [Recovered/Resolved]
  - Abdominal pain [Not Recovered/Not Resolved]
  - Sinusitis [Not Recovered/Not Resolved]
  - Abdominal distension [Not Recovered/Not Resolved]
  - Bronchitis [Not Recovered/Not Resolved]
  - Fatigue [Recovered/Resolved]
  - Musculoskeletal pain [Unknown]
  - Drug ineffective [Unknown]
  - Product dose omission issue [Unknown]
  - Oral discomfort [Not Recovered/Not Resolved]
  - Ear infection [Not Recovered/Not Resolved]
  - Pharyngitis [Unknown]
  - Blood cholesterol increased [Unknown]
  - Blood potassium decreased [Unknown]

NARRATIVE: CASE EVENT DATE: 20240401
